FAERS Safety Report 5247184-3 (Version None)
Quarter: 2007Q1

REPORT INFORMATION
  Report Type: 
  Country: None (occurrence: None)
  Receive Date: 20070221
  Receipt Date: 20070212
  Transmission Date: 20070707
  Serious: Yes (Hospitalization)
  Sender: FDA-Public Use
  Company Number: 236836K06USA

PATIENT
  Age: 36 Year
  Sex: Female

DRUGS (1)
  1. REBIF [Suspect]
     Indication: MULTIPLE SCLEROSIS
     Dosage: 8.8 MCG, ONCE, SUBCUTANEOUS
     Route: 058
     Dates: start: 20061006, end: 20061006

REACTIONS (3)
  - COLLAPSE OF LUNG [None]
  - MYOCARDIAL INFARCTION [None]
  - PNEUMONIA [None]
